FAERS Safety Report 4331004-5 (Version None)
Quarter: 2004Q1

REPORT INFORMATION
  Report Type: 
  Country: None (occurrence: None)
  Receive Date: 20040331
  Receipt Date: 20040317
  Transmission Date: 20041129
  Serious: Yes (Other)
  Sender: FDA-Public Use
  Company Number: 2004005972

PATIENT
  Age: 55 Year
  Sex: Female
  Weight: 74.8435 kg

DRUGS (5)
  1. ZOLOFT [Suspect]
     Indication: ANXIETY
     Dosage: 50 MG (DAILY), ORAL
     Route: 048
  2. BUPROPION HYDROCHLORIDE [Suspect]
     Indication: ILL-DEFINED DISORDER
     Dosage: 300 MG (BID)
     Dates: start: 20030401
  3. LEVOTHYROXINE SODIUM [Concomitant]
  4. CLONAZEPAM [Concomitant]
  5. MULTIVITAMIN [Concomitant]

REACTIONS (12)
  - ANXIETY [None]
  - BENIGN BONE NEOPLASM [None]
  - BRUXISM [None]
  - DRUG WITHDRAWAL SYNDROME [None]
  - FEELING ABNORMAL [None]
  - HOT FLUSH [None]
  - HYPERPHAGIA [None]
  - PARAESTHESIA [None]
  - PHARMACEUTICAL PRODUCT COMPLAINT [None]
  - SLEEP DISORDER [None]
  - TONGUE ULCERATION [None]
  - WEIGHT INCREASED [None]
